FAERS Safety Report 9309809 (Version 1)
Quarter: 2013Q2

REPORT INFORMATION
  Report Type: Spontaneous
  Country: US (occurrence: US)
  Receive Date: 20130525
  Receipt Date: 20130525
  Transmission Date: 20140414
  Serious: Yes (Hospitalization, Other)
  Sender: FDA-Public Use
  Company Number: US201206005947

PATIENT
  Age: 41 Year
  Sex: Female
  Weight: 112.93 kg

DRUGS (10)
  1. BYDUREON [Suspect]
     Indication: TYPE 2 DIABETES MELLITUS
     Route: 058
     Dates: start: 20120518, end: 20120527
  2. METFORMIN [Concomitant]
     Indication: TYPE 2 DIABETES MELLITUS
     Route: 048
     Dates: start: 2004
  3. BENADRYL [Concomitant]
     Indication: ANAPHYLACTIC REACTION
     Route: 048
     Dates: start: 20120529
  4. PREDNISONE [Concomitant]
  5. PREDNISONE [Concomitant]
  6. EPIPEN [Concomitant]
  7. PEPCID [Concomitant]
  8. BIOTIN [Concomitant]
  9. MULTIVITAMIN [Concomitant]
  10. VITAMIN D [Concomitant]

REACTIONS (13)
  - Lip swelling [Recovered/Resolved]
  - Dyspnoea [Recovered/Resolved]
  - Swelling face [Not Recovered/Not Resolved]
  - Lymphadenopathy [Not Recovered/Not Resolved]
  - Pharyngeal oedema [Not Recovered/Not Resolved]
  - Urticaria [Recovered/Resolved]
  - Blood glucose increased [Unknown]
  - Hypoaesthesia oral [Not Recovered/Not Resolved]
  - Dizziness [Recovered/Resolved]
  - Pruritus [Recovered/Resolved]
  - Injection site erythema [Recovered/Resolved]
  - Pruritus [Unknown]
  - Injection site nodule [Unknown]
